FAERS Safety Report 10618862 (Version 1)
Quarter: 2014Q4

REPORT INFORMATION
  Report Type: Spontaneous
  Country: ES (occurrence: None)
  Receive Date: 20141125
  Receipt Date: 20141125
  Transmission Date: 20150529
  Serious: Yes (Hospitalization)
  Sender: FDA-Public Use
  Company Number: INT_00524_2014

PATIENT
  Age: 58 Year
  Sex: Male

DRUGS (4)
  1. HEPARIN LMW [Concomitant]
     Active Substance: UNSPECIFIED INGREDIENT
  2. CISPLATIN (CISPLATIN) (HQ SPECIALTY) [Suspect]
     Active Substance: CISPLATIN
     Indication: LUNG NEOPLASM MALIGNANT
     Dosage: DF
     Route: 042
  3. GEMCITABINE [Suspect]
     Active Substance: GEMCITABINE\GEMCITABINE HYDROCHLORIDE
     Indication: LUNG NEOPLASM MALIGNANT
     Dosage: DF
     Route: 042
  4. BISPHOSPHONATES [Suspect]
     Active Substance: UNSPECIFIED INGREDIENT
     Indication: LUNG NEOPLASM MALIGNANT
     Dosage: DF

REACTIONS (4)
  - Dysarthria [None]
  - Cerebral infarction [None]
  - VIIth nerve paralysis [None]
  - Hemianopia homonymous [None]
